FAERS Safety Report 7482173-X (Version None)
Quarter: 2011Q2

REPORT INFORMATION
  Report Type: 
  Country: None (occurrence: None)
  Receive Date: 20110516
  Receipt Date: 20110512
  Transmission Date: 20111010
  Serious: No
  Sender: FDA-Public Use
  Company Number: US-PFIZER INC-2011102428

PATIENT
  Sex: Female

DRUGS (2)
  1. NASONEX [Concomitant]
     Dosage: UNK
  2. CHANTIX [Suspect]
     Dosage: UNK
     Dates: start: 20110101

REACTIONS (2)
  - HEADACHE [None]
  - NAUSEA [None]
